FAERS Safety Report 4796487-5 (Version None)
Quarter: 2005Q4

REPORT INFORMATION
  Report Type: 
  Country: None (occurrence: None)
  Receive Date: 20051013
  Receipt Date: 20051004
  Transmission Date: 20060501
  Serious: Yes (Disabling)
  Sender: FDA-Public Use
  Company Number: JP-JNJFOC-20050702442

PATIENT
  Age: 41 Year
  Sex: Female

DRUGS (8)
  1. OFLOCET [Suspect]
     Route: 048
     Dates: start: 20040301, end: 20040301
  2. OFLOCET [Suspect]
     Indication: SINUSITIS
     Route: 048
     Dates: start: 20040301, end: 20040301
  3. PYOSTACINE [Suspect]
     Route: 048
     Dates: start: 20031201, end: 20040313
  4. KETEK [Suspect]
     Dosage: TREATMENT PERIOD {1 MONTH.
     Route: 048
     Dates: start: 20031201, end: 20031201
  5. AUGMENTIN '125' [Suspect]
     Route: 048
     Dates: start: 20031201, end: 20031201
  6. AUGMENTIN '125' [Suspect]
     Dosage: TREATMENT PERIOD {1 MONTH.
     Route: 048
     Dates: start: 20031201, end: 20031201
  7. PUREGON [Suspect]
     Indication: OVULATION INDUCTION
     Dosage: LESS THAN ONE MONTHS THERAPY.
     Route: 065
     Dates: start: 20041201, end: 20041201
  8. OVITRELLE [Suspect]
     Indication: OVULATION INDUCTION
     Route: 065
     Dates: end: 20041201

REACTIONS (3)
  - ARTHRALGIA [None]
  - MENTAL DISORDER [None]
  - TENDON DISORDER [None]
